FAERS Safety Report 22243592 (Version 1)
Quarter: 2023Q2

REPORT INFORMATION
  Report Type: Spontaneous
  Country: US (occurrence: US)
  Receive Date: 20230424
  Receipt Date: 20230424
  Transmission Date: 20230722
  Serious: No
  Sender: FDA-Public Use
  Company Number: US-TEVA-2023-US-2876434

PATIENT
  Sex: Female

DRUGS (2)
  1. ADDERALL [Suspect]
     Active Substance: AMPHETAMINE ASPARTATE\AMPHETAMINE SULFATE\DEXTROAMPHETAMINE SACCHARATE\DEXTROAMPHETAMINE SULFATE
     Indication: Attention deficit hyperactivity disorder
     Dosage: 20 MILLIGRAM
     Route: 065
  2. ADDERALL [Suspect]
     Active Substance: AMPHETAMINE ASPARTATE\AMPHETAMINE SULFATE\DEXTROAMPHETAMINE SACCHARATE\DEXTROAMPHETAMINE SULFATE
     Dosage: 10 MILLIGRAM IR
     Route: 065

REACTIONS (10)
  - Fatigue [Unknown]
  - Headache [Unknown]
  - Brain fog [Unknown]
  - Malaise [Unknown]
  - Pain [Unknown]
  - Anxiety [Unknown]
  - Mood swings [Unknown]
  - Influenza like illness [Unknown]
  - Therapeutic product effect decreased [Unknown]
  - Product availability issue [Unknown]
